FAERS Safety Report 8841388 (Version 3)
Quarter: 2012Q4

REPORT INFORMATION
  Report Type: Report from Study
  Country: DE (occurrence: DE)
  Receive Date: 20121015
  Receipt Date: 20121216
  Transmission Date: 20130627
  Serious: Yes (Death, Hospitalization)
  Sender: FDA-Public Use
  Company Number: DE-CELGENEUS-062-50794-12092264

PATIENT
  Age: 72 Year
  Sex: Female
  Weight: 76 kg

DRUGS (4)
  1. VIDAZA [Suspect]
     Indication: MYELODYSPLASTIC SYNDROME
     Route: 058
     Dates: start: 20120910, end: 20120918
  2. CIPROFLOXACIN [Concomitant]
     Indication: DRUG USE FOR UNKNOWN INDICATION
     Route: 065
  3. CIPROBETA [Concomitant]
     Indication: INFECTION PROPHYLAXIS
     Dosage: 1000 Milligram
     Route: 048
     Dates: start: 20120904
  4. GRANOCYTE [Concomitant]
     Indication: COLONY STIMULATING FACTOR THERAPY
     Route: 065
     Dates: start: 20120918, end: 20120920

REACTIONS (1)
  - Cerebral haemorrhage [Fatal]
